FAERS Safety Report 4447025-8 (Version None)
Quarter: 2004Q3

REPORT INFORMATION
  Report Type: 
  Country: None (occurrence: None)
  Receive Date: 20040812
  Receipt Date: 20040427
  Transmission Date: 20050211
  Serious: No
  Sender: FDA-Public Use
  Company Number: US_0404102638

PATIENT
  Age: 74 Year
  Sex: Male

DRUGS (3)
  1. CIALIS [Suspect]
  2. PROPRANOLOL [Concomitant]
  3. CARDURA [Concomitant]

REACTIONS (1)
  - DRUG INEFFECTIVE [None]
